FAERS Safety Report 8997558 (Version 1)
Quarter: 2013Q1

REPORT INFORMATION
  Report Type: Spontaneous
  Country: US (occurrence: US)
  Receive Date: 20130104
  Receipt Date: 20130104
  Transmission Date: 20140127
  Serious: No
  Sender: FDA-Public Use
  Company Number: US-ASTRAZENECA-2012SE95632

PATIENT
  Age: 67 Year
  Sex: Female
  Weight: 90.7 kg

DRUGS (3)
  1. NEXIUM [Suspect]
     Indication: GASTROOESOPHAGEAL REFLUX DISEASE
     Route: 048
     Dates: start: 2007
  2. SULFASALAAINE [Concomitant]
     Indication: RHEUMATOID ARTHRITIS
  3. HYDROXACHLOROQUINE [Concomitant]
     Indication: RHEUMATOID ARTHRITIS

REACTIONS (1)
  - Oropharyngeal pain [Unknown]
